FAERS Safety Report 18511174 (Version 1)
Quarter: 2020Q4

REPORT INFORMATION
  Report Type: Spontaneous
  Country: US (occurrence: US)
  Receive Date: 20201117
  Receipt Date: 20201117
  Transmission Date: 20210114
  Serious: Yes (Hospitalization)
  Sender: FDA-Public Use
  Company Number: US-CADILA HEALTHCARE LIMITED-US-ZYDUS-057824

PATIENT

DRUGS (3)
  1. TRAMADOL. [Suspect]
     Active Substance: TRAMADOL
     Indication: BACK PAIN
     Dosage: UNK
     Route: 065
  2. TRAZODONE [Suspect]
     Active Substance: TRAZODONE HYDROCHLORIDE
     Indication: ANXIETY
     Dosage: UNK, QD
     Route: 065
  3. BUPROPION. [Suspect]
     Active Substance: BUPROPION
     Indication: ANXIETY
     Dosage: UNK, QD
     Route: 065

REACTIONS (1)
  - Serotonin syndrome [Recovered/Resolved]
